FAERS Safety Report 9710248 (Version 3)
Quarter: 2014Q2

REPORT INFORMATION
  Report Type: Spontaneous
  Country: US (occurrence: US)
  Receive Date: 20131126
  Receipt Date: 20140506
  Transmission Date: 20141212
  Serious: Yes (Other)
  Sender: FDA-Public Use
  Company Number: US-BAYER-2013-142277

PATIENT
  Age: 30 Year
  Sex: Female

DRUGS (1)
  1. MIRENA [Suspect]
     Indication: CONTRACEPTION
     Dosage: 20 MCG/24HR, CONT
     Route: 015
     Dates: start: 20110804, end: 20130804

REACTIONS (28)
  - Discomfort [Recovered/Resolved]
  - Dyspareunia [None]
  - Embedded device [None]
  - Cervix oedema [None]
  - Anxiety [None]
  - Tremor [None]
  - Crying [None]
  - Complication of device removal [None]
  - Ovarian cyst ruptured [None]
  - Pelvic fluid collection [None]
  - Vaginal discharge [None]
  - Metrorrhagia [None]
  - Medical device discomfort [None]
  - Acne [None]
  - Procedural pain [None]
  - Abdominal pain lower [None]
  - Pelvic pain [None]
  - Amenorrhoea [Recovered/Resolved]
  - Vaginal haemorrhage [None]
  - Muscle spasms [None]
  - Fatigue [None]
  - Dizziness [None]
  - Hypoaesthesia [None]
  - Vulvovaginal pruritus [None]
  - Bacterial vaginosis [None]
  - Vaginal haemorrhage [None]
  - Panic reaction [None]
  - Vaginal odour [None]
